FAERS Safety Report 7539479-5 (Version None)
Quarter: 2011Q2

REPORT INFORMATION
  Report Type: 
  Country: None (occurrence: None)
  Receive Date: 20110610
  Receipt Date: 20110601
  Transmission Date: 20111010
  Serious: Yes (Hospitalization, Other)
  Sender: FDA-Public Use
  Company Number: US-ASTRAZENECA-2010SE55651

PATIENT
  Age: 31 Year
  Sex: Male
  Weight: 86.2 kg

DRUGS (2)
  1. CLOZAPINE [Interacting]
     Indication: SCHIZOPHRENIA
     Route: 048
  2. PRILOSEC OTC [Suspect]
     Indication: GASTROOESOPHAGEAL REFLUX DISEASE
     Route: 048
     Dates: start: 20100823

REACTIONS (3)
  - ANTIPSYCHOTIC DRUG LEVEL BELOW THERAPEUTIC [None]
  - SCHIZOPHRENIA [None]
  - DRUG INTERACTION [None]
